FAERS Safety Report 9019856 (Version 3)
Quarter: 2013Q1

REPORT INFORMATION
  Report Type: Spontaneous
  Country: US (occurrence: US)
  Receive Date: 20130118
  Receipt Date: 20130319
  Transmission Date: 20140127
  Serious: Yes (Other)
  Sender: FDA-Public Use
  Company Number: US-ROCHE-1006023

PATIENT
  Age: 27 None
  Sex: Male
  Weight: 102.15 kg

DRUGS (1)
  1. ACCUTANE [Suspect]
     Indication: ACNE CYSTIC
     Route: 065
     Dates: start: 200203, end: 20030304

REACTIONS (10)
  - Colitis ulcerative [Unknown]
  - Inflammatory bowel disease [Unknown]
  - Diverticulitis [Unknown]
  - Anxiety [Unknown]
  - Irritable bowel syndrome [Unknown]
  - Blood triglycerides increased [Unknown]
  - Lip dry [Unknown]
  - Dry skin [Unknown]
  - Nasal dryness [Unknown]
  - Xerosis [Unknown]
